FAERS Safety Report 20969290 (Version 1)
Quarter: 2022Q2

REPORT INFORMATION
  Report Type: Spontaneous
  Country: US (occurrence: US)
  Receive Date: 20220616
  Receipt Date: 20220616
  Transmission Date: 20220721
  Serious: No
  Sender: FDA-Public Use
  Company Number: US-SK LIFE SCIENCE, INC-SKPVG-2022-000249

PATIENT

DRUGS (4)
  1. XCOPRI [Suspect]
     Active Substance: CENOBAMATE
     Indication: Seizure
     Dosage: 50 MILLIGRAM, QD
     Route: 048
     Dates: start: 202203
  2. XCOPRI [Suspect]
     Active Substance: CENOBAMATE
     Dosage: 100 MILLIGRAM, QD
     Route: 048
  3. VIMPAT [Concomitant]
     Active Substance: LACOSAMIDE
     Indication: Product used for unknown indication
     Route: 065
  4. APTIOM [Concomitant]
     Active Substance: ESLICARBAZEPINE ACETATE
     Indication: Product used for unknown indication
     Route: 065

REACTIONS (4)
  - Feeling abnormal [Not Recovered/Not Resolved]
  - Oxygen saturation decreased [Not Recovered/Not Resolved]
  - Seizure [Not Recovered/Not Resolved]
  - Aura [Not Recovered/Not Resolved]

NARRATIVE: CASE EVENT DATE: 20220414
